FAERS Safety Report 8457725-0 (Version None)
Quarter: 2012Q2

REPORT INFORMATION
  Report Type: 
  Country: None (occurrence: None)
  Receive Date: 20120618
  Receipt Date: 20120618
  Transmission Date: 20120825
  Serious: Yes (Other)
  Sender: FDA-Public Use
  Company Number: None

PATIENT
  Age: 60 Year
  Sex: Female
  Weight: 78.9259 kg

DRUGS (4)
  1. ESTRADIOL [Suspect]
     Indication: IRRITABILITY
     Dosage: ONE TAB DAILY PO
     Route: 048
     Dates: start: 20120517, end: 20120614
  2. ESTRADIOL [Suspect]
     Indication: MENOPAUSAL SYMPTOMS
     Dosage: ONE TAB DAILY PO
     Route: 048
     Dates: start: 20120517, end: 20120614
  3. ESTRADIOL [Suspect]
     Indication: NIGHT SWEATS
     Dosage: ONE TAB DAILY PO
     Route: 048
     Dates: start: 20120517, end: 20120614
  4. ESTRACE [Suspect]

REACTIONS (7)
  - ABDOMINAL DISTENSION [None]
  - IRRITABILITY [None]
  - NIGHT SWEATS [None]
  - HEADACHE [None]
  - NAUSEA [None]
  - PRODUCT SUBSTITUTION ISSUE [None]
  - PRODUCT QUALITY ISSUE [None]
